FAERS Safety Report 6452971-X (Version None)
Quarter: 2009Q4

REPORT INFORMATION
  Report Type: 
  Country: None (occurrence: None)
  Receive Date: 20091124
  Receipt Date: 20091110
  Transmission Date: 20100525
  Serious: Yes (Other)
  Sender: FDA-Public Use
  Company Number: PHHY2009BR50167

PATIENT
  Age: 47 Year
  Sex: Female

DRUGS (1)
  1. IMATINIB [Suspect]
     Indication: CHRONIC MYELOID LEUKAEMIA
     Dosage: 400 MG/DAY

REACTIONS (13)
  - ACUTE HEPATIC FAILURE [None]
  - BLOOD CREATININE INCREASED [None]
  - CHROMOSOME ANALYSIS ABNORMAL [None]
  - CONFUSIONAL STATE [None]
  - HEPATIC ENCEPHALOPATHY [None]
  - HEPATIC ENZYME INCREASED [None]
  - JAUNDICE [None]
  - LIVER TRANSPLANT [None]
  - LIVER TRANSPLANT REJECTION [None]
  - MAJOR DEPRESSION [None]
  - PANCYTOPENIA [None]
  - PROTHROMBIN TIME PROLONGED [None]
  - RENAL IMPAIRMENT [None]
